FAERS Safety Report 6306909-6 (Version None)
Quarter: 2009Q3

REPORT INFORMATION
  Report Type: 
  Country: None (occurrence: None)
  Receive Date: 20090811
  Receipt Date: 20090811
  Transmission Date: 20100115
  Serious: Yes (Disabling, Other)
  Sender: FDA-Public Use
  Company Number: None

PATIENT
  Age: 40 Year
  Sex: Female
  Weight: 70.3075 kg

DRUGS (1)
  1. EFFEXOR XR [Suspect]
     Indication: PANIC ATTACK
     Dosage: 1 CAP DAILY BUCCAL
     Route: 002
     Dates: start: 20080817, end: 20090715

REACTIONS (2)
  - DRUG WITHDRAWAL SYNDROME [None]
  - FEAR OF DEATH [None]
